FAERS Safety Report 10064608 (Version 1)
Quarter: 2014Q2

REPORT INFORMATION
  Report Type: Spontaneous
  Country: US (occurrence: None)
  Receive Date: 20140407
  Receipt Date: 20140407
  Transmission Date: 20141212
  Serious: Yes (Disabling)
  Sender: FDA-Public Use
  Company Number: None

PATIENT
  Age: 62 Year
  Sex: Male
  Weight: 86.18 kg

DRUGS (1)
  1. LIPITOR [Suspect]
     Dosage: 1 PILL ONCE DAILY TAKEN BY MOUTH

REACTIONS (4)
  - Ligament pain [None]
  - Arthritis [None]
  - Feeling abnormal [None]
  - Depression [None]
